FAERS Safety Report 7755786-5 (Version None)
Quarter: 2011Q3

REPORT INFORMATION
  Report Type: 
  Country: None (occurrence: None)
  Receive Date: 20110916
  Receipt Date: 20110708
  Transmission Date: 20111222
  Serious: Yes (Other)
  Sender: FDA-Public Use
  Company Number: DE-UCBSA-024214

PATIENT
  Age: 45 Year
  Sex: Female

DRUGS (4)
  1. METHOTREXATE [Concomitant]
     Indication: RHEUMATOID ARTHRITIS
     Dates: start: 20060101
  2. CIMZIA [Suspect]
     Indication: RHEUMATOID ARTHRITIS
     Dosage: ONCE IN WEEK 0
     Route: 058
     Dates: start: 20100901
  3. CIMZIA [Suspect]
     Dosage: 200 MG TWICE IN WEEK 2
     Route: 058
     Dates: start: 20100901
  4. CIMZIA [Suspect]
     Dosage: 200 MG ONCE IN WEEK 4
     Route: 058
     Dates: start: 20100901

REACTIONS (1)
  - DRUG ERUPTION [None]
